FAERS Safety Report 12526885 (Version 6)
Quarter: 2016Q4

REPORT INFORMATION
  Report Type: Report from Study
  Country: US (occurrence: US)
  Receive Date: 20160705
  Receipt Date: 20161007
  Transmission Date: 20170207
  Serious: Yes (Hospitalization)
  Sender: FDA-Public Use
  Company Number: US-AMGEN-USASL2016083685

PATIENT
  Age: 77 Year
  Sex: Female

DRUGS (2)
  1. ENBREL [Suspect]
     Active Substance: ETANERCEPT
     Dosage: UNK
     Route: 065
  2. ENBREL [Suspect]
     Active Substance: ETANERCEPT
     Indication: RHEUMATOID ARTHRITIS
     Dosage: 50 MG, QWK
     Route: 065
     Dates: start: 201306

REACTIONS (10)
  - Drug ineffective [Unknown]
  - Joint swelling [Unknown]
  - Gallbladder disorder [Unknown]
  - Erythema [Unknown]
  - Condition aggravated [Unknown]
  - Musculoskeletal stiffness [Not Recovered/Not Resolved]
  - Joint warmth [Unknown]
  - Diarrhoea [Unknown]
  - Mobility decreased [Unknown]
  - Pain [Not Recovered/Not Resolved]

NARRATIVE: CASE EVENT DATE: 201606
